FAERS Safety Report 24135982 (Version 1)
Quarter: 2024Q3

REPORT INFORMATION
  Report Type: Spontaneous
  Country: US (occurrence: US)
  Receive Date: 20240725
  Receipt Date: 20240725
  Transmission Date: 20241017
  Serious: Yes (Hospitalization, Other)
  Sender: NOVITIUM PHARMA
  Company Number: US-NOVITIUMPHARMA-2024USNVP01383

PATIENT
  Sex: Female

DRUGS (4)
  1. PREDNISONE [Suspect]
     Active Substance: PREDNISONE
     Indication: Asthma
     Route: 048
  2. PREDNISONE [Suspect]
     Active Substance: PREDNISONE
     Dosage: WEANED TO 27.5MG DAILY
  3. PREDNISONE [Suspect]
     Active Substance: PREDNISONE
     Dosage: INCREASED TO 50MG DAILY
  4. OMALIZUMAB [Concomitant]
     Active Substance: OMALIZUMAB
     Indication: Asthma
     Route: 058

REACTIONS (2)
  - Eosinophilic granulomatosis with polyangiitis [Unknown]
  - Rebound effect [Unknown]
